FAERS Safety Report 8906399 (Version 1)
Quarter: 2012Q4

REPORT INFORMATION
  Report Type: Spontaneous
  Country: US (occurrence: None)
  Receive Date: 20121109
  Receipt Date: 20121109
  Transmission Date: 20130627
  Serious: Yes (Disabling)
  Sender: FDA-Public Use
  Company Number: None

PATIENT
  Age: 34 Year
  Sex: Female
  Weight: 54.43 kg

DRUGS (1)
  1. LEVAQUIN [Suspect]
     Indication: SINUS INFECTION
     Route: 048
     Dates: start: 201104

REACTIONS (4)
  - Arthralgia [None]
  - Pain in extremity [None]
  - Pain in extremity [None]
  - Carpal tunnel syndrome [None]
